FAERS Safety Report 24682350 (Version 1)
Quarter: 2024Q4

REPORT INFORMATION
  Report Type: Spontaneous
  Country: TW (occurrence: TW)
  Receive Date: 20241130
  Receipt Date: 20241130
  Transmission Date: 20250115
  Serious: Yes (Other)
  Sender: AMGEN
  Company Number: TW-AMGEN-TWNSP2024232513

PATIENT
  Age: 63 Year
  Sex: Female

DRUGS (1)
  1. CINACALCET HYDROCHLORIDE [Suspect]
     Active Substance: CINACALCET HYDROCHLORIDE
     Indication: Hyperparathyroidism tertiary
     Dosage: 100 MILLIGRAM, QD
     Route: 065

REACTIONS (7)
  - Gangrene [Unknown]
  - Sepsis [Unknown]
  - Calciphylaxis [Unknown]
  - Calcification metastatic [Unknown]
  - Aortic valve stenosis [Unknown]
  - Off label use [Unknown]
  - Drug ineffective for unapproved indication [Unknown]
